FAERS Safety Report 12320736 (Version 1)
Quarter: 2016Q2

REPORT INFORMATION
  Report Type: Spontaneous
  Country: US (occurrence: US)
  Receive Date: 20160429
  Receipt Date: 20160429
  Transmission Date: 20160815
  Serious: Yes (Other)
  Sender: FDA-Public Use
  Company Number: US-ROCHE-1545760

PATIENT
  Sex: Female

DRUGS (1)
  1. AVASTIN [Suspect]
     Active Substance: BEVACIZUMAB
     Indication: NEOVASCULAR AGE-RELATED MACULAR DEGENERATION
     Dosage: 25 MG/ML SYRINGE, 0.05 ML DOSE GIVEN
     Route: 031

REACTIONS (3)
  - Product quality issue [Unknown]
  - Endophthalmitis [Unknown]
  - Off label use [Unknown]
